FAERS Safety Report 9707510 (Version 1)
Quarter: 2013Q4

REPORT INFORMATION
  Report Type: Spontaneous
  Country: US (occurrence: US)
  Receive Date: 20131125
  Receipt Date: 20131125
  Transmission Date: 20140711
  Serious: No
  Sender: FDA-Public Use
  Company Number: US-TEVA-375312USA

PATIENT
  Age: 26 Year
  Sex: Female
  Weight: 59.02 kg

DRUGS (2)
  1. PARAGARD 380A [Suspect]
     Indication: CONTRACEPTION
     Route: 015
     Dates: start: 20121017
  2. CYMBALTA [Interacting]
     Indication: DEPRESSION
     Dates: start: 2011

REACTIONS (5)
  - Vulvovaginal burning sensation [Not Recovered/Not Resolved]
  - Alopecia [Not Recovered/Not Resolved]
  - Vaginal discharge [Not Recovered/Not Resolved]
  - Menorrhagia [Recovered/Resolved]
  - Menorrhagia [Recovered/Resolved]
